FAERS Safety Report 4672589-9 (Version None)
Quarter: 2005Q2

REPORT INFORMATION
  Report Type: 
  Country: None (occurrence: None)
  Receive Date: 20050524
  Receipt Date: 20050421
  Transmission Date: 20051028
  Serious: Yes (Other)
  Sender: FDA-Public Use
  Company Number: JP-GLAXOSMITHKLINE-B0378860A

PATIENT
  Age: 32 Year
  Sex: Female
  Weight: 60 kg

DRUGS (2)
  1. ZANTAC [Suspect]
     Indication: PREMEDICATION
     Dosage: 50MG PER DAY
     Route: 042
     Dates: start: 20050210, end: 20050419
  2. SEROTONE [Suspect]
     Indication: PREMEDICATION
     Dosage: 10MG PER DAY
     Route: 042
     Dates: start: 20050210, end: 20050419

REACTIONS (1)
  - SHOCK [None]
